FAERS Safety Report 4303356-3 (Version None)
Quarter: 2004Q1

REPORT INFORMATION
  Report Type: 
  Country: None (occurrence: None)
  Receive Date: 20040223
  Receipt Date: 20040211
  Transmission Date: 20041129
  Serious: Yes (Hospitalization)
  Sender: FDA-Public Use
  Company Number: BE-JNJFOC-20040202821

PATIENT
  Sex: Male

DRUGS (1)
  1. PREPULSID (CISAPRIDE) UNSPECIFIED [Suspect]
     Indication: IMPAIRED GASTRIC EMPTYING
     Dosage: 10 MG, 4 IN 1 DAY,
     Dates: start: 20031022, end: 20031106

REACTIONS (3)
  - GASTROINTESTINAL NEOPLASM [None]
  - INTESTINAL OBSTRUCTION [None]
  - NEOPLASM RECURRENCE [None]
